FAERS Safety Report 23295273 (Version 4)
Quarter: 2024Q2

REPORT INFORMATION
  Report Type: Spontaneous
  Country: US (occurrence: US)
  Receive Date: 20231214
  Receipt Date: 20240515
  Transmission Date: 20240715
  Serious: Yes (Other)
  Sender: FDA-Public Use
  Company Number: US-SANOFI-01866946

PATIENT
  Age: 84 Year
  Sex: Male
  Weight: 174 kg

DRUGS (1)
  1. LANTUS SOLOSTAR [Suspect]
     Active Substance: INSULIN GLARGINE
     Indication: Type 2 diabetes mellitus
     Dosage: 22 IU, QD
     Dates: start: 2009, end: 20240503

REACTIONS (7)
  - Lung neoplasm malignant [Unknown]
  - Brain cancer metastatic [Unknown]
  - Leukaemia [Unknown]
  - Bone cancer [Unknown]
  - Blood glucose increased [Recovered/Resolved]
  - Product storage error [Unknown]
  - Drug ineffective [Unknown]

NARRATIVE: CASE EVENT DATE: 20231118
